FAERS Safety Report 9479204 (Version 1)
Quarter: 2013Q3

REPORT INFORMATION
  Report Type: Spontaneous
  Country: US (occurrence: US)
  Receive Date: 20130827
  Receipt Date: 20130827
  Transmission Date: 20140515
  Serious: Yes (Death)
  Sender: FDA-Public Use
  Company Number: US-TEVA-428042USA

PATIENT
  Age: 39 Year
  Sex: Male

DRUGS (1)
  1. SYNRIBO [Suspect]
     Dates: start: 20130727

REACTIONS (1)
  - Death [Fatal]
